FAERS Safety Report 7189966-7 (Version None)
Quarter: 2010Q4

REPORT INFORMATION
  Report Type: 
  Country: None (occurrence: None)
  Receive Date: 20101210
  Receipt Date: 20101125
  Transmission Date: 20110411
  Serious: Yes (Other)
  Sender: FDA-Public Use
  Company Number: 1000017555

PATIENT
  Age: 85 Year
  Sex: Male

DRUGS (7)
  1. MEMANTINE [Suspect]
     Indication: DEMENTIA ALZHEIMER'S TYPE
     Dosage: ORAL
     Route: 048
     Dates: start: 20091201
  2. GALANTAMINE HYDROBROMIDE [Suspect]
     Indication: DEMENTIA ALZHEIMER'S TYPE
     Dosage: 1 DOSAGE FORMS, ORAL
     Route: 048
     Dates: start: 20080101
  3. DEPAMIDE (VALPROMIDE) [Suspect]
     Indication: ABNORMAL BEHAVIOUR
     Dosage: 2 DOSAGE FORMS, ORAL
     Route: 048
     Dates: start: 20100201
  4. PRAVASTATIN [Concomitant]
  5. ASPEGIC (ACETYLSALICYLATE LYSINE) [Concomitant]
  6. ATENOLOL [Concomitant]
  7. LORAZEPAM [Concomitant]

REACTIONS (3)
  - ACTIVITIES OF DAILY LIVING IMPAIRED [None]
  - DEEP VEIN THROMBOSIS [None]
  - SEDATION [None]
